FAERS Safety Report 25681958 (Version 1)
Quarter: 2025Q3

REPORT INFORMATION
  Report Type: Spontaneous
  Country: CA (occurrence: CA)
  Receive Date: 20250814
  Receipt Date: 20250814
  Transmission Date: 20251021
  Serious: Yes (Hospitalization, Other)
  Sender: SANDOZ
  Company Number: CA-SANDOZ-SDZ2025CA058663

PATIENT
  Sex: Male
  Weight: 70 kg

DRUGS (5)
  1. ENTYVIO [Suspect]
     Active Substance: VEDOLIZUMAB
     Indication: Colitis ulcerative
     Route: 042
  2. ENTYVIO [Suspect]
     Active Substance: VEDOLIZUMAB
     Route: 042
  3. ENTYVIO [Suspect]
     Active Substance: VEDOLIZUMAB
     Route: 042
  4. HYDROXYZINE [Suspect]
     Active Substance: HYDROXYZINE HYDROCHLORIDE
     Indication: Product used for unknown indication
     Route: 065
  5. MESALAMINE [Concomitant]
     Active Substance: MESALAMINE
     Indication: Product used for unknown indication
     Route: 065

REACTIONS (11)
  - Chromaturia [Unknown]
  - Colitis ulcerative [Unknown]
  - Constipation [Unknown]
  - Diarrhoea [Unknown]
  - Drug level decreased [Unknown]
  - Jaundice [Unknown]
  - Ocular icterus [Unknown]
  - Sleep disorder [Unknown]
  - Somnolence [Unknown]
  - Pruritus [Unknown]
  - Inappropriate schedule of product administration [Unknown]
